FAERS Safety Report 7577880-4 (Version None)
Quarter: 2011Q2

REPORT INFORMATION
  Report Type: 
  Country: None (occurrence: None)
  Receive Date: 20110628
  Receipt Date: 20110616
  Transmission Date: 20111010
  Serious: Yes (Hospitalization)
  Sender: FDA-Public Use
  Company Number: US-ELI_LILLY_AND_COMPANY-US201106005990

PATIENT
  Sex: Male

DRUGS (4)
  1. HUMALOG [Suspect]
     Indication: TYPE 1 DIABETES MELLITUS
     Dosage: UNK
     Route: 058
     Dates: start: 19950101
  2. RANIDINE [Concomitant]
     Dosage: 150 MG, BID
  3. NEURONTIN [Concomitant]
     Dosage: 600 MG, BID
  4. REGLAN [Concomitant]
     Dosage: UNK, QID
     Route: 048

REACTIONS (1)
  - VOMITING [None]
